FAERS Safety Report 19673217 (Version 1)
Quarter: 2021Q3

REPORT INFORMATION
  Report Type: Spontaneous
  Country: KR (occurrence: KR)
  Receive Date: 20210809
  Receipt Date: 20210809
  Transmission Date: 20211014
  Serious: Yes (Hospitalization, Other)
  Sender: FDA-Public Use
  Company Number: KR-ACCORD-227615

PATIENT
  Age: 86 Year
  Sex: Male

DRUGS (1)
  1. CLOPIDOGREL [Suspect]
     Active Substance: CLOPIDOGREL BISULFATE
     Indication: ANGINA UNSTABLE

REACTIONS (2)
  - Small intestinal ulcer haemorrhage [Recovered/Resolved]
  - Drug resistance [Unknown]
